FAERS Safety Report 4640177-6 (Version None)
Quarter: 2005Q2

REPORT INFORMATION
  Report Type: 
  Country: None (occurrence: None)
  Receive Date: 20050412
  Receipt Date: 20050331
  Transmission Date: 20051028
  Serious: Yes (Other)
  Sender: FDA-Public Use
  Company Number: FRWYE017606SEP04

PATIENT
  Age: 5 Year
  Sex: Male

DRUGS (2)
  1. REFACTO [Suspect]
     Indication: FACTOR VIII DEFICIENCY
     Dosage: SEE IMAGE
     Route: 042
     Dates: start: 20000101, end: 20040401
  2. REFACTO [Suspect]
     Indication: FACTOR VIII DEFICIENCY
     Dosage: SEE IMAGE
     Route: 042
     Dates: start: 20040404, end: 20040625

REACTIONS (3)
  - COAGULATION FACTOR VIII LEVEL DECREASED [None]
  - DRUG INEFFECTIVE [None]
  - HAEMARTHROSIS [None]
